FAERS Safety Report 21513794 (Version 1)
Quarter: 2022Q4

REPORT INFORMATION
  Report Type: Report from Study
  Country: US (occurrence: US)
  Receive Date: 20221027
  Receipt Date: 20221027
  Transmission Date: 20230113
  Serious: No
  Sender: FDA-Public Use
  Company Number: US-ABBVIE-4161697

PATIENT
  Sex: Female

DRUGS (2)
  1. VENCLEXTA [Suspect]
     Active Substance: VENETOCLAX
     Indication: Chronic lymphocytic leukaemia
     Route: 048
     Dates: start: 202205, end: 2022
  2. VENCLEXTA [Suspect]
     Active Substance: VENETOCLAX
     Indication: Chronic lymphocytic leukaemia
     Route: 048
     Dates: start: 20220923

REACTIONS (6)
  - COVID-19 [Unknown]
  - White blood cell count decreased [Unknown]
  - Fatigue [Unknown]
  - Rhinorrhoea [Unknown]
  - Rhinitis [Unknown]
  - Rhinalgia [Unknown]

NARRATIVE: CASE EVENT DATE: 20220101
